FAERS Safety Report 9206453 (Version 1)
Quarter: 2013Q1

REPORT INFORMATION
  Report Type: Spontaneous
  Country: US (occurrence: None)
  Receive Date: 20120709
  Receipt Date: 20120709
  Transmission Date: 20140127
  Serious: Yes (Other)
  Sender: FDA-Public Use
  Company Number: PHHY2011US65165

PATIENT
  Age: 83 Year
  Sex: Female

DRUGS (2)
  1. GLEEVEC (IMATINIB) UNKNOWN [Suspect]
     Route: 048
     Dates: start: 20110613
  2. GLEEVEC [Suspect]
     Route: 048

REACTIONS (12)
  - Pharyngeal oedema [None]
  - Oral pain [None]
  - Eating disorder [None]
  - Gastrooesophageal reflux disease [None]
  - Periorbital oedema [None]
  - Dizziness [None]
  - Fatigue [None]
  - Nausea [None]
  - Face oedema [None]
  - Dyspepsia [None]
  - Alopecia [None]
  - Seborrhoeic dermatitis [None]
